FAERS Safety Report 20950593 (Version 1)
Quarter: 2022Q2

REPORT INFORMATION
  Report Type: Spontaneous
  Country: US (occurrence: None)
  Receive Date: 20220611
  Receipt Date: 20220611
  Transmission Date: 20220721
  Serious: Yes (Death, Hospitalization)
  Sender: FDA-Public Use
  Company Number: None

PATIENT
  Age: 74 Year
  Sex: Male
  Weight: 61.1 kg

DRUGS (2)
  1. CARBOPLATIN [Suspect]
     Active Substance: CARBOPLATIN
     Dates: end: 20211118
  2. ALIMTA [Suspect]
     Active Substance: PEMETREXED DISODIUM
     Dates: end: 20211118

REACTIONS (9)
  - Pneumonia aspiration [None]
  - Hypoxia [None]
  - Respiratory distress [None]
  - Respiratory failure [None]
  - Tracheo-oesophageal fistula [None]
  - Shock [None]
  - Atrial fibrillation [None]
  - Oesophagitis [None]
  - Critical illness [None]

NARRATIVE: CASE EVENT DATE: 20220528
